FAERS Safety Report 9964458 (Version 2)
Quarter: 2014Q1

REPORT INFORMATION
  Report Type: Spontaneous
  Country: BE (occurrence: BE)
  Receive Date: 20140305
  Receipt Date: 20140305
  Transmission Date: 20141002
  Serious: Yes (Other)
  Sender: FDA-Public Use
  Company Number: BE-PFIZER INC-2014063361

PATIENT
  Sex: Male

DRUGS (3)
  1. PANTOMED [Suspect]
     Dosage: 40 MG, DAILY
     Route: 065
  2. EMCONCOR [Concomitant]
     Dosage: UNK
  3. ASAFLOW [Concomitant]
     Dosage: UNK

REACTIONS (2)
  - Blood pressure decreased [Unknown]
  - Heart rate decreased [Unknown]
